FAERS Safety Report 4554864-1 (Version None)
Quarter: 2005Q1

REPORT INFORMATION
  Report Type: 
  Country: None (occurrence: None)
  Receive Date: 20050114
  Receipt Date: 20041206
  Transmission Date: 20050727
  Serious: Yes (Other)
  Sender: FDA-Public Use
  Company Number: GXKR2004GB00474

PATIENT
  Age: 48 Year
  Sex: Female

DRUGS (2)
  1. CEFALEXIN (NGX) (CEFALEXIN) [Suspect]
     Indication: SALPINGITIS
     Dosage: 500 MG, TID, ORAL
     Route: 048
     Dates: start: 20040903, end: 20040915
  2. METRONIDAZOLE [Suspect]
     Indication: SALPINGITIS
     Dosage: 400 MG, TID, ORAL
     Route: 048
     Dates: start: 20040903, end: 20040915

REACTIONS (2)
  - ARTHROPATHY [None]
  - RASH MACULAR [None]
